FAERS Safety Report 5946076-1 (Version None)
Quarter: 2008Q4

REPORT INFORMATION
  Report Type: 
  Country: None (occurrence: None)
  Receive Date: 20081110
  Receipt Date: 20081031
  Transmission Date: 20090506
  Serious: Yes (Hospitalization)
  Sender: FDA-Public Use
  Company Number: US-ROCHE-594858

PATIENT
  Age: 71 Year
  Sex: Female

DRUGS (6)
  1. BONIVA [Suspect]
     Indication: OSTEOPOROSIS
     Route: 048
     Dates: start: 20070101, end: 20080909
  2. LEVOTHYROXINE SODIUM [Concomitant]
  3. AVALIDE [Concomitant]
  4. CALCIUM [Concomitant]
  5. ESTRACE [Concomitant]
     Dosage: DRUG REPORTED AS: ESTASE VAGINAL CREAM.
     Route: 067
  6. ASPIRIN [Concomitant]
     Dosage: DRUG REPORTED AS: BABY ASPIRIN.

REACTIONS (1)
  - THYROID NEOPLASM [None]
